FAERS Safety Report 7577254-6 (Version None)
Quarter: 2011Q2

REPORT INFORMATION
  Report Type: 
  Country: None (occurrence: None)
  Receive Date: 20110628
  Receipt Date: 20110621
  Transmission Date: 20111010
  Serious: Yes (Hospitalization, Other)
  Sender: FDA-Public Use
  Company Number: US-SANOFI-AVENTIS-2011SA030388

PATIENT
  Sex: Female
  Weight: 59.09 kg

DRUGS (7)
  1. LOVASTATIN [Concomitant]
     Dates: start: 20100101
  2. FIORINAL [Concomitant]
     Indication: HEADACHE
     Route: 065
     Dates: start: 20080101
  3. LANTUS [Suspect]
     Indication: TYPE 2 DIABETES MELLITUS
     Dosage: DOSE:12 UNIT(S)
     Route: 058
     Dates: start: 20050101
  4. LANTUS [Suspect]
     Indication: TYPE 2 DIABETES MELLITUS
     Dates: start: 19930101
  5. PLAVIX [Concomitant]
     Route: 048
     Dates: start: 20100101
  6. ZOLPIDEM [Concomitant]
     Indication: SLEEP DISORDER
     Route: 065
     Dates: start: 19930101
  7. FISH OIL [Concomitant]
     Route: 065
     Dates: start: 20100101

REACTIONS (3)
  - MACULAR DEGENERATION [None]
  - SPEECH DISORDER [None]
  - CEREBROVASCULAR ACCIDENT [None]
